FAERS Safety Report 6230641-0 (Version None)
Quarter: 2009Q2

REPORT INFORMATION
  Report Type: 
  Country: None (occurrence: None)
  Receive Date: 20090615
  Receipt Date: 20090508
  Transmission Date: 20091009
  Serious: No
  Sender: FDA-Public Use
  Company Number: US-ABBOTT-09P-163-0572546-00

PATIENT
  Sex: Male
  Weight: 72.64 kg

DRUGS (6)
  1. TRILIPIX [Suspect]
     Indication: BLOOD CHOLESTEROL INCREASED
     Route: 048
     Dates: start: 20090301, end: 20090505
  2. NIASPAN [Suspect]
     Indication: BLOOD CHOLESTEROL INCREASED
     Route: 048
     Dates: start: 20090301, end: 20090301
  3. NIASPAN [Suspect]
     Route: 048
     Dates: start: 20090301
  4. AVAPRO [Concomitant]
     Indication: HYPERTENSION
  5. SYNTHROID [Concomitant]
     Indication: HYPOTHYROIDISM
  6. CARDILOL [Concomitant]
     Indication: HYPERTENSION
     Route: 048

REACTIONS (8)
  - BACK PAIN [None]
  - CHEST PAIN [None]
  - FAECES DISCOLOURED [None]
  - FAECES PALE [None]
  - GAIT DISTURBANCE [None]
  - HEADACHE [None]
  - MYALGIA [None]
  - NAUSEA [None]
